FAERS Safety Report 5313680-3 (Version None)
Quarter: 2007Q2

REPORT INFORMATION
  Report Type: 
  Country: None (occurrence: None)
  Receive Date: 20070430
  Receipt Date: 20070430
  Transmission Date: 20071010
  Serious: No
  Sender: FDA-Public Use
  Company Number: None

PATIENT

DRUGS (2)
  1. ADRIAMYCIN PFS [Suspect]
     Dosage: INJECTABLE
  2. DOXIL [Suspect]
     Dosage: INJECTABLE

REACTIONS (5)
  - CARDIAC DISORDER [None]
  - DRUG DISPENSING ERROR [None]
  - MEDICATION ERROR [None]
  - SKIN DISCOLOURATION [None]
  - WRONG DRUG ADMINISTERED [None]
